FAERS Safety Report 4350931-6 (Version None)
Quarter: 2004Q2

REPORT INFORMATION
  Report Type: 
  Country: None (occurrence: None)
  Receive Date: 20040430
  Receipt Date: 20040216
  Transmission Date: 20050107
  Serious: Yes (Hospitalization)
  Sender: FDA-Public Use
  Company Number: GB-GLAXOSMITHKLINE-B0323814A

PATIENT
  Age: 65 Year
  Sex: Female

DRUGS (7)
  1. ONDANSETRON HCL [Suspect]
     Dosage: 4MG PER DAY
     Route: 042
     Dates: start: 20031220, end: 20031221
  2. SEVREDOL [Suspect]
     Dosage: 10MG THREE TIMES PER DAY
     Route: 048
     Dates: start: 20031221, end: 20031221
  3. ACETAMINOPHEN [Concomitant]
     Route: 065
  4. FERROUS SULFATE TAB [Concomitant]
     Route: 065
  5. PREDNISOLONE [Concomitant]
     Route: 065
  6. METHOTREXATE [Concomitant]
     Route: 065
  7. SULPHASALAZINE [Concomitant]
     Route: 065

REACTIONS (9)
  - HYPERTONIA [None]
  - HYPOTENSION [None]
  - LOSS OF CONSCIOUSNESS [None]
  - NAUSEA [None]
  - RASH [None]
  - RESPIRATORY ARREST [None]
  - RESPIRATORY DEPRESSION [None]
  - TACHYCARDIA [None]
  - VOMITING [None]
